FAERS Safety Report 7486981-0 (Version None)
Quarter: 2011Q2

REPORT INFORMATION
  Report Type: 
  Country: None (occurrence: None)
  Receive Date: 20110517
  Receipt Date: 20110504
  Transmission Date: 20111010
  Serious: Yes (Hospitalization)
  Sender: FDA-Public Use
  Company Number: US-ELI_LILLY_AND_COMPANY-US201105001630

PATIENT
  Sex: Female

DRUGS (11)
  1. POTASSIUM CHLORIDE [Concomitant]
  2. DUONEB [Concomitant]
  3. MAGNESIUM OXIDE [Concomitant]
  4. MACROBID [Concomitant]
  5. TOPROL-XL [Concomitant]
  6. IMDUR [Concomitant]
  7. ISOSORBIDE MONONITRATE [Concomitant]
  8. ASPIRIN [Concomitant]
  9. FORTEO [Suspect]
     Indication: OSTEOPOROSIS
     Dosage: 20 UG, QD
  10. LASIX [Concomitant]
  11. NITROFURANTOIN [Concomitant]

REACTIONS (2)
  - DYSPNOEA [None]
  - CARDIAC FAILURE CONGESTIVE [None]
